FAERS Safety Report 9044202 (Version 1)
Quarter: 2013Q1

REPORT INFORMATION
  Report Type: Report from Study
  Country: US (occurrence: US)
  Receive Date: 20130130
  Receipt Date: 20130130
  Transmission Date: 20140127
  Serious: No
  Sender: FDA-Public Use
  Company Number: US-ABBOTT-12P-163-0955765-00

PATIENT
  Age: 75 Year
  Sex: Female

DRUGS (18)
  1. HUMIRA 40 MG/0.8 ML PEN [Suspect]
     Indication: CROHN^S DISEASE
     Dates: start: 20120626, end: 20120626
  2. HUMIRA 40 MG/0.8 ML PEN [Suspect]
     Route: 050
     Dates: start: 20120703
  3. BLOOD PRESSURE MEDICINE [Concomitant]
     Indication: BLOOD PRESSURE
  4. DIABETES MEDICATION [Concomitant]
     Indication: DIABETES MELLITUS
  5. PREDNISONE [Concomitant]
     Indication: CROHN^S DISEASE
  6. PREDNISONE [Concomitant]
  7. PREDNISONE [Concomitant]
  8. COUMADIN [Concomitant]
     Indication: THROMBOSIS
  9. HYOSCYAMINE SULFATE [Concomitant]
     Indication: IRRITABLE BOWEL SYNDROME
  10. GLIPIZIDE [Concomitant]
     Indication: DIABETES MELLITUS
  11. JANUVIA [Concomitant]
     Indication: DIABETES MELLITUS
  12. ATENOLOL [Concomitant]
     Indication: HYPERTENSION
  13. LISINOPRIL [Concomitant]
     Indication: HYPERTENSION
  14. FOLIC ACID [Concomitant]
     Indication: VITAMIN SUPPLEMENTATION
  15. CLARITIN [Concomitant]
     Indication: HYPERSENSITIVITY
  16. PLETAL [Concomitant]
     Indication: THROMBOSIS
  17. LUNESTA [Concomitant]
     Indication: INSOMNIA
  18. HYDROCODONE [Concomitant]
     Indication: PAIN
     Dosage: AS NEEDED

REACTIONS (15)
  - Drug dose omission [Unknown]
  - Crohn^s disease [Recovered/Resolved]
  - Inflammation [Recovered/Resolved]
  - Pain [Recovered/Resolved]
  - Abdominal pain [Recovering/Resolving]
  - Abdominal pain [Recovering/Resolving]
  - Diarrhoea [Recovering/Resolving]
  - Abdominal pain [Recovering/Resolving]
  - Diarrhoea [Recovering/Resolving]
  - Diarrhoea [Recovering/Resolving]
  - Diarrhoea [Recovering/Resolving]
  - Diarrhoea [Recovering/Resolving]
  - Diarrhoea [Recovering/Resolving]
  - Diarrhoea [Recovering/Resolving]
  - Diarrhoea [Recovering/Resolving]
